FAERS Safety Report 20265550 (Version 1)
Quarter: 2021Q4

REPORT INFORMATION
  Report Type: Spontaneous
  Country: US (occurrence: None)
  Receive Date: 20211231
  Receipt Date: 20211231
  Transmission Date: 20220303
  Serious: Yes (Other)
  Sender: FDA-Public Use
  Company Number: None

PATIENT
  Age: 49 Year
  Sex: Female

DRUGS (3)
  1. PRIVIGEN [Suspect]
     Active Substance: HUMAN IMMUNOGLOBULIN G
     Indication: Sjogren^s syndrome
     Dosage: OTHER FREQUENCY : WEEKLY;?
     Route: 042
  2. PRIVIGEN [Suspect]
     Active Substance: HUMAN IMMUNOGLOBULIN G
     Indication: Stiff person syndrome
  3. Privigen (IVIG) 40g [Concomitant]

REACTIONS (6)
  - Urticaria [None]
  - Urticaria [None]
  - Rash [None]
  - Infusion related reaction [None]
  - Burning sensation [None]
  - Dysuria [None]

NARRATIVE: CASE EVENT DATE: 20211231
